FAERS Safety Report 23560346 (Version 2)
Quarter: 2024Q2

REPORT INFORMATION
  Report Type: Spontaneous
  Country: US (occurrence: US)
  Receive Date: 20240223
  Receipt Date: 20240426
  Transmission Date: 20240716
  Serious: Yes (Other)
  Sender: FDA-Public Use
  Company Number: US-PFIZER INC-PV202400024669

PATIENT
  Age: 68 Year
  Sex: Male
  Weight: 100.31 kg

DRUGS (5)
  1. INLYTA [Suspect]
     Active Substance: AXITINIB
     Indication: Renal cancer
     Dosage: 5 MG, DAILY TAKE ONE (1) TABLET DAILY WITH OR WITHOUT FOOD.
     Route: 048
  2. INLYTA [Suspect]
     Active Substance: AXITINIB
     Dosage: 5 MG, 2X/DAY
     Route: 048
     Dates: start: 20231201, end: 202312
  3. INLYTA [Suspect]
     Active Substance: AXITINIB
     Dosage: 5 MG, 2X/DAY
     Route: 048
     Dates: start: 20231206, end: 202312
  4. INLYTA [Suspect]
     Active Substance: AXITINIB
     Dosage: 5 MG, 2X/DAY
     Route: 048
     Dates: start: 20240103, end: 202401
  5. INLYTA [Suspect]
     Active Substance: AXITINIB
     Dosage: 5 MG, 1X/DAY
     Route: 048
     Dates: start: 202401

REACTIONS (12)
  - Hypothyroidism [Unknown]
  - Hypertension [Not Recovered/Not Resolved]
  - Oropharyngeal pain [Recovering/Resolving]
  - Dysphagia [Unknown]
  - Swelling [Unknown]
  - Pharyngitis [Not Recovered/Not Resolved]
  - Aphonia [Not Recovered/Not Resolved]
  - Fatigue [Recovering/Resolving]
  - Diarrhoea [Unknown]
  - Throat irritation [Not Recovered/Not Resolved]
  - Haemoptysis [Not Recovered/Not Resolved]
  - Off label use [Unknown]

NARRATIVE: CASE EVENT DATE: 20231204
